FAERS Safety Report 12080677 (Version 1)
Quarter: 2016Q1

REPORT INFORMATION
  Report Type: Report from Study
  Country: US (occurrence: US)
  Receive Date: 20160216
  Receipt Date: 20160216
  Transmission Date: 20160526
  Serious: No
  Sender: FDA-Public Use
  Company Number: PHEH2016US003695

PATIENT
  Sex: Male

DRUGS (1)
  1. EXTAVIA [Suspect]
     Active Substance: INTERFERON BETA-1B
     Indication: MULTIPLE SCLEROSIS
     Dosage: 0.0625 MG (0.25 ML), QOD WEEKS 1-2
     Route: 058
     Dates: start: 20160209

REACTIONS (4)
  - Accidental overdose [Unknown]
  - Injection site haemorrhage [Unknown]
  - Influenza like illness [Unknown]
  - Confusional state [Unknown]
